FAERS Safety Report 5455756-6 (Version None)
Quarter: 2007Q3

REPORT INFORMATION
  Report Type: 
  Country: None (occurrence: None)
  Receive Date: 20070918
  Receipt Date: 20070330
  Transmission Date: 20080115
  Serious: Yes (Other)
  Sender: FDA-Public Use
  Company Number: US-ASTRAZENECA-2006UW22602

PATIENT
  Age: 27 Year
  Sex: Female

DRUGS (4)
  1. SEROQUEL [Suspect]
     Indication: DEPRESSION
     Route: 048
     Dates: end: 20030101
  2. TOPAMAX [Concomitant]
     Indication: WEIGHT CONTROL
  3. XENICAL [Concomitant]
     Indication: WEIGHT CONTROL
  4. PHENTERMINE HYDROCHLORIDE [Concomitant]
     Indication: WEIGHT CONTROL

REACTIONS (2)
  - HYPERGLYCAEMIA [None]
  - PANCREATITIS [None]
